FAERS Safety Report 8356971-4 (Version None)
Quarter: 2012Q2

REPORT INFORMATION
  Report Type: 
  Country: None (occurrence: None)
  Receive Date: 20120510
  Receipt Date: 20120501
  Transmission Date: 20120825
  Serious: Yes (Other)
  Sender: FDA-Public Use
  Company Number: 2012SP023236

PATIENT
  Age: 35 Year
  Sex: Female

DRUGS (3)
  1. SYNTHROID [Concomitant]
  2. FOLLISTIM AQ [Suspect]
     Indication: INFERTILITY FEMALE
     Dosage: 75 IU;QD;SC
     Route: 058
     Dates: start: 20120429
  3. METFORMIN HCL [Concomitant]

REACTIONS (2)
  - BLINDNESS TRANSIENT [None]
  - BLINDNESS UNILATERAL [None]
